FAERS Safety Report 7095568-3 (Version None)
Quarter: 2010Q4

REPORT INFORMATION
  Report Type: 
  Country: None (occurrence: None)
  Receive Date: 20101103
  Receipt Date: 20101022
  Transmission Date: 20110411
  Serious: Yes (Hospitalization)
  Sender: FDA-Public Use
  Company Number: 020308

PATIENT
  Sex: Male
  Weight: 65 kg

DRUGS (3)
  1. VIMPAT [Suspect]
     Indication: EPILEPSY
     Dosage: 100 MG BID ORAL
     Route: 048
     Dates: start: 20100522
  2. KEPPRA [Concomitant]
  3. CARBAMAZEPINE [Concomitant]

REACTIONS (5)
  - C-REACTIVE PROTEIN INCREASED [None]
  - GAIT DISTURBANCE [None]
  - PARESIS [None]
  - PERIPHERAL SENSORY NEUROPATHY [None]
  - RED BLOOD CELL SEDIMENTATION RATE INCREASED [None]
